FAERS Safety Report 6467442-4 (Version None)
Quarter: 2009Q4

REPORT INFORMATION
  Report Type: 
  Country: None (occurrence: None)
  Receive Date: 20091202
  Receipt Date: 20091126
  Transmission Date: 20100525
  Serious: Yes (Other)
  Sender: FDA-Public Use
  Company Number: B0609199A

PATIENT
  Age: 2 Year

DRUGS (1)
  1. PAXIL [Suspect]
     Indication: AFFECTIVE DISORDER

REACTIONS (8)
  - BENIGN NEOPLASM OF SPINAL CORD [None]
  - CEREBRAL DYSGENESIS [None]
  - CORNEAL DISORDER [None]
  - DRUG EXPOSURE DURING PREGNANCY [None]
  - EPILEPSY [None]
  - MELANOCYTIC NAEVUS [None]
  - MENTAL RETARDATION [None]
  - NEURODERMATITIS [None]
